FAERS Safety Report 12267321 (Version 2)
Quarter: 2017Q1

REPORT INFORMATION
  Report Type: Spontaneous
  Country: US (occurrence: US)
  Receive Date: 20160414
  Receipt Date: 20170227
  Transmission Date: 20170428
  Serious: Yes (Other)
  Sender: FDA-Public Use
  Company Number: US-SUN PHARMACEUTICAL INDUSTRIES LTD-2015US-98088

PATIENT
  Sex: Female
  Weight: 1.28 kg

DRUGS (10)
  1. IMATINIB [Suspect]
     Active Substance: IMATINIB
     Indication: B PRECURSOR TYPE ACUTE LEUKAEMIA
     Dosage: 400 MG, DAILY
     Route: 064
  2. CYCLOPHOSPHAMIDE. [Suspect]
     Active Substance: CYCLOPHOSPHAMIDE
     Indication: B PRECURSOR TYPE ACUTE LEUKAEMIA
     Dosage: 300 MG/M2, BID
     Route: 064
  3. CYTARABINE. [Suspect]
     Active Substance: CYTARABINE
     Indication: PROPHYLAXIS
     Dosage: 100 MG
     Route: 064
  4. VINCRISTINE [Suspect]
     Active Substance: VINCRISTINE
     Indication: B PRECURSOR TYPE ACUTE LEUKAEMIA
     Dosage: (2 MG INTRAVENOUSLY ON DAYS 4 AND 11) CYCLICAL
     Route: 064
  5. DEXAMETHASONE. [Suspect]
     Active Substance: DEXAMETHASONE
     Indication: B PRECURSOR TYPE ACUTE LEUKAEMIA
     Dosage: (40 MG ORALLY ON DAYS 1-4 AND 11-14) CYCLICAL
     Route: 064
  6. DOXORUBICIN [Suspect]
     Active Substance: DOXORUBICIN
     Indication: B PRECURSOR TYPE ACUTE LEUKAEMIA
     Dosage: (50 MG/M2 INTRAVENOUSLY ON DAY 4) CYCLICAL
     Route: 064
  7. MESNA. [Suspect]
     Active Substance: MESNA
     Indication: B PRECURSOR TYPE ACUTE LEUKAEMIA
     Dosage: 1800 MG/M2 BY CONTINUOUS INTRAVENOUS INFUSION OVER 42 H
     Route: 064
  8. FILGRASTIM [Suspect]
     Active Substance: FILGRASTIM
     Indication: PROPHYLAXIS
     Dosage: UNK UNK, DAILY
     Route: 064
  9. SULPHAMETHOXAZOLE/TRIMETHOPRIM [Suspect]
     Active Substance: SULFAMETHOXAZOLE\TRIMETHOPRIM
     Indication: ANTIFUNGAL PROPHYLAXIS
     Dosage: UNK
     Route: 064
  10. FILGRASTIM [Suspect]
     Active Substance: FILGRASTIM
     Indication: NEUTROPENIA

REACTIONS (3)
  - Low birth weight baby [Unknown]
  - Foetal exposure during pregnancy [Recovered/Resolved]
  - Premature baby [Unknown]
